FAERS Safety Report 12196670 (Version 2)
Quarter: 2016Q2

REPORT INFORMATION
  Report Type: Spontaneous
  Country: FR (occurrence: FR)
  Receive Date: 20160321
  Receipt Date: 20160418
  Transmission Date: 20160815
  Serious: Yes (Hospitalization, Other)
  Sender: FDA-Public Use
  Company Number: FR-BRISTOL-MYERS SQUIBB COMPANY-BMS-2016-020184

PATIENT
  Age: 67 Year
  Sex: Male
  Weight: 57 kg

DRUGS (6)
  1. OPDIVO [Suspect]
     Active Substance: NIVOLUMAB
     Indication: NON-SMALL CELL LUNG CANCER
     Dosage: 174 MG, UNK
     Route: 065
     Dates: start: 20150703, end: 20150703
  2. OPDIVO [Suspect]
     Active Substance: NIVOLUMAB
     Dosage: 174 MG, UNK
     Route: 065
     Dates: start: 20150731, end: 20150731
  3. OPDIVO [Suspect]
     Active Substance: NIVOLUMAB
     Dosage: 174 MG, UNK
     Route: 065
     Dates: start: 20150814, end: 20150814
  4. OPDIVO [Suspect]
     Active Substance: NIVOLUMAB
     Dosage: 168 MG, UNK
     Route: 065
     Dates: start: 20150923, end: 20150923
  5. OPDIVO [Suspect]
     Active Substance: NIVOLUMAB
     Dosage: 168 MG, UNK
     Route: 065
     Dates: start: 20150904, end: 20150904
  6. OPDIVO [Suspect]
     Active Substance: NIVOLUMAB
     Dosage: 174 MG, UNK
     Route: 065
     Dates: start: 20150717, end: 20150717

REACTIONS (6)
  - Stenosis [Unknown]
  - Blood thyroid stimulating hormone abnormal [Unknown]
  - Malignant neoplasm progression [Unknown]
  - Platelet disorder [Unknown]
  - Urinary retention [Unknown]
  - Electrolyte imbalance [Unknown]

NARRATIVE: CASE EVENT DATE: 20150715
